FAERS Safety Report 7602637-5 (Version None)
Quarter: 2011Q2

REPORT INFORMATION
  Report Type: 
  Country: None (occurrence: None)
  Receive Date: 20110630
  Receipt Date: 20110617
  Transmission Date: 20111010
  Serious: Yes (Hospitalization, Other)
  Sender: FDA-Public Use
  Company Number: 2010SP053024

PATIENT
  Age: 40 Year
  Sex: Female
  Weight: 99.3377 kg

DRUGS (3)
  1. NUVARING [Suspect]
     Indication: CONTRACEPTION
     Dates: start: 20040101, end: 20071001
  2. DIOVAN [Suspect]
     Indication: HYPERTENSION
     Dosage: 160 MG; QD;, 80 MG; QD;
     Dates: start: 20060824
  3. DIOVAN [Suspect]
     Indication: HYPERTENSION
     Dosage: 160 MG; QD;, 80 MG; QD;
     Dates: end: 20060823

REACTIONS (43)
  - DYSPNOEA EXERTIONAL [None]
  - HYPERHIDROSIS [None]
  - VISION BLURRED [None]
  - PALPITATIONS [None]
  - TRICUSPID VALVE INCOMPETENCE [None]
  - TRIGEMINAL NEURALGIA [None]
  - PREGNANCY WITH CONTRACEPTIVE DEVICE [None]
  - EMOTIONAL DISORDER [None]
  - HYPOTENSION [None]
  - INSOMNIA [None]
  - DEEP VEIN THROMBOSIS [None]
  - HAEMORRHAGIC DISORDER [None]
  - HAEMORRHAGIC OVARIAN CYST [None]
  - LEFT ATRIAL DILATATION [None]
  - DYSPNOEA [None]
  - STRESS [None]
  - GOUT [None]
  - COUGH [None]
  - CHEST PAIN [None]
  - BRONCHITIS [None]
  - LUNG NEOPLASM [None]
  - INTRA-UTERINE DEATH [None]
  - MENTAL DISORDER [None]
  - MULTIPLE INJURIES [None]
  - ASTHMA [None]
  - FATIGUE [None]
  - SLEEP APNOEA SYNDROME [None]
  - SINUS TACHYCARDIA [None]
  - CHILLS [None]
  - DIZZINESS [None]
  - SUPRAVENTRICULAR TACHYCARDIA [None]
  - DRUG EXPOSURE DURING PREGNANCY [None]
  - TWIN PREGNANCY [None]
  - AUTOIMMUNE DISORDER [None]
  - MIGRAINE [None]
  - ABDOMINAL PAIN UPPER [None]
  - PULMONARY EMBOLISM [None]
  - COGNITIVE DISORDER [None]
  - HYPERTENSIVE HEART DISEASE [None]
  - SNORING [None]
  - PULMONARY ARTERIAL HYPERTENSION [None]
  - ATRIAL FLUTTER [None]
  - ABORTION INCOMPLETE [None]
